FAERS Safety Report 13749785 (Version 1)
Quarter: 2017Q3

REPORT INFORMATION
  Report Type: Spontaneous
  Country: US (occurrence: US)
  Receive Date: 20170713
  Receipt Date: 20170713
  Transmission Date: 20171127
  Serious: No
  Sender: FDA-Public Use
  Company Number: None

PATIENT
  Age: 46 Year
  Sex: Male

DRUGS (10)
  1. MELOXICAM. [Concomitant]
     Active Substance: MELOXICAM
  2. GABAPENTIN. [Concomitant]
     Active Substance: GABAPENTIN
  3. FLUTICAS [Concomitant]
  4. HYDROXYZ [Concomitant]
     Active Substance: HYDROXYZINE HYDROCHLORIDE
  5. PREDNISONE. [Concomitant]
     Active Substance: PREDNISONE
  6. CHOLESTYRAM [Concomitant]
     Active Substance: CHOLESTYRAMINE
  7. OCALIVA [Suspect]
     Active Substance: OBETICHOLIC ACID
     Indication: BILIARY CIRRHOSIS PRIMARY
     Route: 048
     Dates: start: 20170418
  8. AZATHIOPRINE. [Concomitant]
     Active Substance: AZATHIOPRINE
  9. RIFAMATE [Concomitant]
     Active Substance: ISONIAZID\RIFAMPIN
  10. RIFAMPIN. [Concomitant]
     Active Substance: RIFAMPIN

REACTIONS (1)
  - Pruritus [None]

NARRATIVE: CASE EVENT DATE: 201704
